FAERS Safety Report 25530706 (Version 1)
Quarter: 2025Q3

REPORT INFORMATION
  Report Type: Spontaneous
  Country: AU (occurrence: AU)
  Receive Date: 20250708
  Receipt Date: 20250708
  Transmission Date: 20251021
  Serious: Yes (Hospitalization, Other)
  Sender: WINDER LABORATORY
  Company Number: AU-WINDERLABS-2025WILIT00001

PATIENT
  Age: 6 Decade
  Sex: Female

DRUGS (6)
  1. MORPHINE SULFATE [Suspect]
     Active Substance: MORPHINE SULFATE
     Indication: Analgesic therapy
     Route: 065
  2. LITHIUM [Suspect]
     Active Substance: LITHIUM
     Indication: Analgesic therapy
     Route: 065
  3. OLANZAPINE [Suspect]
     Active Substance: OLANZAPINE
     Indication: Bipolar disorder
     Route: 065
  4. AMITRIPTYLINE [Suspect]
     Active Substance: AMITRIPTYLINE
     Indication: Depression
     Route: 065
  5. METRONIDAZOLE [Suspect]
     Active Substance: METRONIDAZOLE
     Indication: Antibiotic therapy
     Route: 065
  6. IRON [Suspect]
     Active Substance: IRON
     Indication: Supplementation therapy
     Route: 042

REACTIONS (2)
  - Angioedema [Recovering/Resolving]
  - Urticaria [Unknown]
